FAERS Safety Report 7176433-X (Version None)
Quarter: 2010Q4

REPORT INFORMATION
  Report Type: 
  Country: None (occurrence: None)
  Receive Date: 20101220
  Receipt Date: 20101214
  Transmission Date: 20110411
  Serious: Yes (Death, Hospitalization)
  Sender: FDA-Public Use
  Company Number: US-US-EMD SERONO, INC.-7031800

PATIENT
  Sex: Female

DRUGS (3)
  1. REBIF [Suspect]
     Indication: MULTIPLE SCLEROSIS
     Dates: start: 20090819, end: 20101117
  2. AMPYRA [Suspect]
     Dates: end: 20100101
  3. EFFEXOR [Concomitant]

REACTIONS (2)
  - ACUTE HEPATIC FAILURE [None]
  - PAIN [None]
